FAERS Safety Report 9702281 (Version 1)
Quarter: 2013Q4

REPORT INFORMATION
  Report Type: Spontaneous
  Country: US (occurrence: US)
  Receive Date: 20131121
  Receipt Date: 20131121
  Transmission Date: 20140711
  Serious: Yes (Hospitalization)
  Sender: FDA-Public Use
  Company Number: US-MYLANLABS-2013S1025459

PATIENT
  Age: 52 Year
  Sex: Female

DRUGS (6)
  1. CARBAMAZEPINE [Suspect]
     Indication: BIPOLAR DISORDER
     Dosage: 700MG
     Route: 048
  2. TRAZODONE [Suspect]
     Indication: OVERDOSE
     Dosage: 2400MG
     Route: 048
  3. DIAZEPAM [Suspect]
     Indication: OVERDOSE
     Dosage: 60MG
     Route: 048
  4. ARIPIPRAZOLE [Concomitant]
     Dosage: 36MG
     Route: 048
  5. FLUOXETINE [Concomitant]
     Dosage: 20-30MG
     Route: 048
  6. ROPINIROLE [Concomitant]
     Route: 048

REACTIONS (5)
  - Grand mal convulsion [Recovered/Resolved]
  - Ventricular arrhythmia [Recovered/Resolved]
  - Coma [Recovered/Resolved]
  - Overdose [Unknown]
  - Overdose [Unknown]
